FAERS Safety Report 7950248-4 (Version None)
Quarter: 2011Q4

REPORT INFORMATION
  Report Type: 
  Country: None (occurrence: None)
  Receive Date: 20111130
  Receipt Date: 20111121
  Transmission Date: 20120403
  Serious: Yes (Hospitalization)
  Sender: FDA-Public Use
  Company Number: US-BAYER-2011-009477

PATIENT
  Age: 26 Year
  Sex: Female
  Weight: 85.714 kg

DRUGS (7)
  1. YAZ [Suspect]
     Indication: POLYCYSTIC OVARIES
     Dosage: UNK
     Dates: start: 20081124, end: 20090111
  2. IBUPROFEN [Concomitant]
  3. MULTI-VITAMIN [Concomitant]
  4. DILAUDID [Concomitant]
     Indication: POLYCYSTIC OVARIES
     Dosage: UNK
     Dates: start: 20081124
  5. METFORMIN HCL [Concomitant]
  6. VICODIN [Concomitant]
     Dosage: UNK
     Dates: start: 20081201
  7. MEFOXIN [Concomitant]
     Dosage: UNK
     Dates: start: 20081201

REACTIONS (1)
  - PULMONARY EMBOLISM [None]
